FAERS Safety Report 6886386-7 (Version None)
Quarter: 2010Q3

REPORT INFORMATION
  Report Type: 
  Country: None (occurrence: None)
  Receive Date: 20100729
  Receipt Date: 20090515
  Transmission Date: 20110219
  Serious: No
  Sender: FDA-Public Use
  Company Number: US-PFIZER INC-2009205960

PATIENT
  Age: 44 Year
  Sex: Female

DRUGS (5)
  1. CELEBREX [Suspect]
     Dosage: 200 MG/DAY
     Dates: start: 20081110
  2. PREMARIN [Concomitant]
     Indication: HORMONE REPLACEMENT THERAPY
     Dosage: 0.625 UNK/ DAY
     Route: 048
  3. FOSAMAX [Concomitant]
     Dosage: 70 MG, WEEKLY
     Route: 048
  4. TOPROL-XL [Concomitant]
     Dosage: 100 MG, 1X/DAY
     Route: 048
  5. KLONOPIN [Concomitant]
     Dosage: 1 MG, 1X/DAY
     Route: 048

REACTIONS (3)
  - ALANINE AMINOTRANSFERASE INCREASED [None]
  - ASPARTATE AMINOTRANSFERASE INCREASED [None]
  - BLOOD ALKALINE PHOSPHATASE INCREASED [None]
